FAERS Safety Report 7393985-5 (Version None)
Quarter: 2011Q2

REPORT INFORMATION
  Report Type: 
  Country: None (occurrence: None)
  Receive Date: 20110405
  Receipt Date: 20100614
  Transmission Date: 20111010
  Serious: No
  Sender: FDA-Public Use
  Company Number: US-AMGEN-KDL418044

PATIENT
  Sex: Male

DRUGS (10)
  1. ENOXAPARIN [Concomitant]
     Dosage: UNK UNK, UNK
     Route: 058
  2. ACETYLSALICYLIC ACID [Concomitant]
     Dosage: 81 MG, UNK
  3. NEULASTA [Suspect]
     Indication: CHEMOTHERAPY
     Dosage: 6 MG, UNK
     Route: 058
     Dates: start: 20100613
  4. MESNA [Concomitant]
     Dosage: UNK UNK, UNK
  5. OXYCODONE [Concomitant]
     Dosage: UNK UNK, UNK
  6. MULTI-VITAMINS [Concomitant]
     Dosage: UNK UNK, UNK
  7. IFOSFAMIDE [Concomitant]
     Dosage: UNK UNK, UNK
  8. DOCUSATE [Concomitant]
     Dosage: UNK UNK, UNK
  9. ASCORBIC ACID [Concomitant]
     Dosage: UNK UNK, UNK
  10. DOXORUBICIN HCL [Concomitant]
     Dosage: UNK UNK, UNK

REACTIONS (5)
  - URTICARIA [None]
  - RASH ERYTHEMATOUS [None]
  - INJECTION SITE RASH [None]
  - SKIN BURNING SENSATION [None]
  - PRURITUS [None]
